FAERS Safety Report 6961068-1 (Version None)
Quarter: 2010Q3

REPORT INFORMATION
  Report Type: 
  Country: None (occurrence: None)
  Receive Date: 20100823
  Receipt Date: 20100719
  Transmission Date: 20110219
  Serious: No
  Sender: FDA-Public Use
  Company Number: 004914

PATIENT
  Sex: Female

DRUGS (2)
  1. CIMZIA [Suspect]
     Indication: CROHN'S DISEASE
     Dosage: (SUBCUTANEOUS) (400 MG 1/X MONTH SUBCUTANEOUS)
     Route: 058
     Dates: start: 20090513
  2. CIMZIA [Suspect]

REACTIONS (3)
  - CHILLS [None]
  - CONSTIPATION [None]
  - FATIGUE [None]
